FAERS Safety Report 7362410-2 (Version None)
Quarter: 2011Q1

REPORT INFORMATION
  Report Type: 
  Country: None (occurrence: None)
  Receive Date: 20110318
  Receipt Date: 20110307
  Transmission Date: 20110831
  Serious: Yes (Other)
  Sender: FDA-Public Use
  Company Number: DE-ACTELION-A-US2011-46237

PATIENT

DRUGS (1)
  1. VENTAVIS [Suspect]
     Dosage: 2.5 UG, UNK
     Route: 055
     Dates: start: 20100128, end: 20110112

REACTIONS (5)
  - HIP SURGERY [None]
  - MUSCULOSKELETAL PAIN [None]
  - FEELING ABNORMAL [None]
  - DIABETES MELLITUS [None]
  - INFLUENZA [None]
